FAERS Safety Report 8985266 (Version 3)
Quarter: 2014Q2

REPORT INFORMATION
  Report Type: Spontaneous
  Country: JP (occurrence: JP)
  Receive Date: 20121226
  Receipt Date: 20131018
  Transmission Date: 20141212
  Serious: Yes (Death)
  Sender: FDA-Public Use
  Company Number: JP-PFIZER INC-2012324865

PATIENT
  Age: 8 Decade
  Sex: Female
  Weight: 45 kg

DRUGS (3)
  1. HEPARIN SODIUM [Suspect]
     Dosage: UNK
  2. ACETYLSALICYLIC ACID [Suspect]
     Dosage: UNK
  3. PREDNISOLONE [Suspect]
     Indication: GLOMERULONEPHRITIS
     Dosage: UNK

REACTIONS (2)
  - Haemorrhage [Fatal]
  - Shock haemorrhagic [Fatal]
